FAERS Safety Report 5009466-X (Version None)
Quarter: 2006Q2

REPORT INFORMATION
  Report Type: 
  Country: None (occurrence: None)
  Receive Date: 20060522
  Receipt Date: 20060508
  Transmission Date: 20061013
  Serious: Yes (Other)
  Sender: FDA-Public Use
  Company Number: TRP_0748_2006

PATIENT
  Age: 53 Year
  Sex: Female
  Weight: 72.5755 kg

DRUGS (3)
  1. RIBASPHERE [Suspect]
     Indication: HEPATITIS C
     Dosage: 400 MG BID PO
     Route: 048
     Dates: start: 20060203, end: 20060323
  2. PEG-INTRON [Suspect]
     Indication: HEPATITIS C
     Dosage: 0.4 ML QWK SC
     Route: 058
     Dates: start: 20060203, end: 20060323
  3. CELEXA [Concomitant]

REACTIONS (10)
  - ADVERSE EVENT [None]
  - CELLULITIS [None]
  - DEPRESSION [None]
  - DERMATITIS [None]
  - EPISTAXIS [None]
  - RETINAL ISCHAEMIA [None]
  - SKIN NODULE [None]
  - STAPHYLOCOCCAL INFECTION [None]
  - THIRST [None]
  - TREATMENT NONCOMPLIANCE [None]
